FAERS Safety Report 5995976-5 (Version None)
Quarter: 2008Q4

REPORT INFORMATION
  Report Type: 
  Country: None (occurrence: None)
  Receive Date: 20081212
  Receipt Date: 20081006
  Transmission Date: 20090506
  Serious: No
  Sender: FDA-Public Use
  Company Number: US-ABBOTT-08P-163-0480045-00

PATIENT
  Sex: Female
  Weight: 68.1 kg

DRUGS (4)
  1. HUMIRA [Suspect]
     Indication: PSORIASIS
     Route: 058
     Dates: start: 20080919, end: 20080919
  2. HUMIRA [Suspect]
     Route: 058
     Dates: start: 20081003
  3. VIGRAN [Concomitant]
     Indication: VITAMIN SUPPLEMENTATION
     Route: 048
     Dates: start: 20080601
  4. LEVOCARNITINE HYDROCHLORIDE [Concomitant]
     Indication: SUPPLEMENTATION THERAPY
     Dosage: 1 TABLESPOON
     Route: 048
     Dates: start: 20070101

REACTIONS (2)
  - EYE PRURITUS [None]
  - EYE SWELLING [None]
